FAERS Safety Report 15413382 (Version 2)
Quarter: 2018Q4

REPORT INFORMATION
  Report Type: Spontaneous
  Country: US (occurrence: US)
  Receive Date: 20180921
  Receipt Date: 20181011
  Transmission Date: 20190204
  Serious: No
  Sender: FDA-Public Use
  Company Number: US-BAUSCH-BL-2018-025211

PATIENT
  Age: 70 Year
  Sex: Female
  Weight: 45.4 kg

DRUGS (4)
  1. TIMOLOL. [Concomitant]
     Active Substance: TIMOLOL
     Indication: PRODUCT USED FOR UNKNOWN INDICATION
  2. LOTEMAX [Suspect]
     Active Substance: LOTEPREDNOL ETABONATE
     Dosage: WITH A GAP OF ALMOST ONE MONTH EACH PATIENT CHANGED REGIMEN
     Route: 047
     Dates: start: 201807, end: 2018
  3. LOTEMAX [Suspect]
     Active Substance: LOTEPREDNOL ETABONATE
     Dosage: WITH A GAP OF ALMOST ONE MONTH EACH PATIENT CHANGED REGIMEN
     Route: 047
     Dates: start: 2018, end: 2018
  4. LOTEMAX [Suspect]
     Active Substance: LOTEPREDNOL ETABONATE
     Indication: POSTOPERATIVE CARE
     Route: 047
     Dates: start: 20180523, end: 201807

REACTIONS (4)
  - Incorrect product administration duration [Recovered/Resolved]
  - Weight increased [Recovered/Resolved]
  - Off label use [Recovered/Resolved]
  - Vision blurred [Recovered/Resolved]

NARRATIVE: CASE EVENT DATE: 2018
